FAERS Safety Report 5387790-9 (Version None)
Quarter: 2007Q3

REPORT INFORMATION
  Report Type: 
  Country: None (occurrence: None)
  Receive Date: 20070712
  Receipt Date: 20070702
  Transmission Date: 20080115
  Serious: Yes (Other)
  Sender: FDA-Public Use
  Company Number: 2006-01-0871

PATIENT
  Age: 51 Year
  Sex: Female

DRUGS (2)
  1. PEGINTERFERON ALFA-2B (S-P) (PEGINTERFERON ALFA-2B) [Suspect]
     Indication: HEPATITIS C
  2. RIBAVIRIN [Suspect]
     Indication: HEPATITIS C

REACTIONS (2)
  - DEAFNESS NEUROSENSORY [None]
  - VOGT-KOYANAGI-HARADA SYNDROME [None]
